FAERS Safety Report 6153357-8 (Version None)
Quarter: 2009Q2

REPORT INFORMATION
  Report Type: 
  Country: None (occurrence: None)
  Receive Date: 20090409
  Receipt Date: 20090325
  Transmission Date: 20091009
  Serious: Yes (Other)
  Sender: FDA-Public Use
  Company Number: 2009S1005331

PATIENT
  Age: 15 Year
  Sex: Male

DRUGS (2)
  1. ATENOLOL [Suspect]
     Indication: CARDIOMYOPATHY
     Dosage: 50 MG, DAILY; ORAL
     Route: 048
     Dates: start: 20090216
  2. LOTEN [Concomitant]

REACTIONS (6)
  - ABDOMINAL DISCOMFORT [None]
  - CHEST PAIN [None]
  - DIARRHOEA [None]
  - HEADACHE [None]
  - MALAISE [None]
  - PRODUCT QUALITY ISSUE [None]
